FAERS Safety Report 17631271 (Version 2)
Quarter: 2020Q2

REPORT INFORMATION
  Report Type: Report from Study
  Country: FI (occurrence: FI)
  Receive Date: 20200406
  Receipt Date: 20200413
  Transmission Date: 20200713
  Serious: No
  Sender: FDA-Public Use
  Company Number: FI-MYLANLABS-2020M1034562

PATIENT
  Age: 34 Year
  Sex: Male

DRUGS (7)
  1. DULOXETINE. [Concomitant]
     Active Substance: DULOXETINE
     Dosage: 90 MILLIGRAM
  2. SOLIAN [Concomitant]
     Active Substance: AMISULPRIDE
  3. NORITREN [Concomitant]
     Active Substance: NORTRIPTYLINE HYDROCHLORIDE
  4. GABAPENTIN. [Concomitant]
     Active Substance: GABAPENTIN
  5. DULOXETINE. [Concomitant]
     Active Substance: DULOXETINE
     Dosage: 60 UNK
  6. LEPONEX [Suspect]
     Active Substance: CLOZAPINE
     Indication: SCHIZOPHRENIA
     Dosage: 650 MILLIGRAM, QD
     Dates: start: 20190213
  7. NALTREXON [Concomitant]
     Active Substance: NALTREXONE

REACTIONS (3)
  - Blood cholesterol decreased [Unknown]
  - Blood triglycerides abnormal [Recovering/Resolving]
  - Weight increased [Not Recovered/Not Resolved]

NARRATIVE: CASE EVENT DATE: 2019
